FAERS Safety Report 20816932 (Version 12)
Quarter: 2023Q1

REPORT INFORMATION
  Report Type: Other
  Country: CA (occurrence: None)
  Receive Date: 20220512
  Receipt Date: 20230301
  Transmission Date: 20230418
  Serious: Yes (Hospitalization, Other)
  Sender: FDA-Public Use
  Company Number: CA-ROCHE-3094032

PATIENT
  Age: 58 Year
  Sex: Female

DRUGS (5)
  1. OCREVUS [Suspect]
     Active Substance: OCRELIZUMAB
     Indication: Primary progressive multiple sclerosis
     Dosage: INITIALLY 300 MG AT DAY 0 AND 14, THEN 600 MG EVERY 6 MONTH
     Route: 042
     Dates: start: 20201007
  2. PREGABALIN [Concomitant]
     Active Substance: PREGABALIN
     Dosage: 1 TABLET DAILY ONGOING UNTIL SATURDAY
     Route: 048
  3. MODERNA COVID-19 VACCINE [Concomitant]
     Active Substance: ELASOMERAN
  4. ELIQUIS [Concomitant]
     Active Substance: APIXABAN
  5. URSODIOL [Concomitant]
     Active Substance: URSODIOL

REACTIONS (12)
  - Pneumonitis [Not Recovered/Not Resolved]
  - Pneumonia streptococcal [Unknown]
  - Pulmonary embolism [Not Recovered/Not Resolved]
  - Autoimmune hepatitis [Unknown]
  - SARS-CoV-2 test positive [Recovering/Resolving]
  - Jaundice [Unknown]
  - Insomnia [Unknown]
  - Pruritus [Unknown]
  - Scab [Not Recovered/Not Resolved]
  - Haemorrhage [Recovered/Resolved]
  - Blood bilirubin increased [Unknown]
  - Jaundice [Not Recovered/Not Resolved]

NARRATIVE: CASE EVENT DATE: 20220429
